FAERS Safety Report 5955848-9 (Version None)
Quarter: 2008Q4

REPORT INFORMATION
  Report Type: 
  Country: None (occurrence: None)
  Receive Date: 20081117
  Receipt Date: 20081105
  Transmission Date: 20090506
  Serious: Yes (Life-Threatening)
  Sender: FDA-Public Use
  Company Number: JP-PFIZER INC-2008095500

PATIENT
  Age: 65 Year
  Sex: Male

DRUGS (4)
  1. CAMPTOSAR [Suspect]
     Indication: COLON CANCER
     Route: 042
     Dates: start: 20081014, end: 20081028
  2. FLUOROURACIL [Concomitant]
     Indication: COLON CANCER
     Dosage: TEXT:400 MG/M2 BOLUS
     Route: 042
     Dates: start: 20081014, end: 20081028
  3. FLUOROURACIL [Concomitant]
     Route: 042
     Dates: start: 20081014, end: 20081028
  4. LEUCOVORIN CALCIUM [Concomitant]
     Indication: COLON CANCER
     Route: 042
     Dates: start: 20081014, end: 20081028

REACTIONS (3)
  - ENCEPHALOPATHY [None]
  - LEUKOPENIA [None]
  - NEUTROPENIA [None]
